FAERS Safety Report 9557603 (Version 1)
Quarter: 2013Q3

REPORT INFORMATION
  Report Type: Spontaneous
  Country: GB (occurrence: None)
  Receive Date: 20130923
  Receipt Date: 20130923
  Transmission Date: 20140515
  Serious: Yes (Hospitalization)
  Sender: FDA-Public Use
  Company Number: AUR-APL-2013-07757

PATIENT
  Age: 21 Year
  Sex: Male
  Weight: 76.2 kg

DRUGS (6)
  1. RISPERIDONE [Suspect]
     Indication: PRODUCT USED FOR UNKNOWN INDICATION
     Dosage: 12 MG (6 MG, 2 IN 1 D), UNKNOWN
     Route: 048
  2. ZAPONEX [Suspect]
     Indication: SCHIZOPHRENIA
     Route: 048
     Dates: start: 20130701, end: 20130720
  3. HYOSCINE HYDROBROMIDE (HYOSCINE HYDROBROMIDE) [Concomitant]
  4. LORAZEPAM (LORAZEPAM) [Concomitant]
  5. VALPROATE [Concomitant]
  6. ZOPICLONE (ZOPICLONE) [Concomitant]

REACTIONS (13)
  - Pyrexia [None]
  - Monocyte count increased [None]
  - Red blood cell count decreased [None]
  - Platelet count decreased [None]
  - Neuroleptic malignant syndrome [None]
  - Viral infection [None]
  - Hyperhidrosis [None]
  - Tachycardia [None]
  - Hypersensitivity [None]
  - Blood pressure systolic increased [None]
  - C-reactive protein increased [None]
  - Blood creatine phosphokinase increased [None]
  - PCO2 increased [None]
